FAERS Safety Report 9172035 (Version 1)
Quarter: 2013Q1

REPORT INFORMATION
  Report Type: Spontaneous
  Country: US (occurrence: US)
  Receive Date: 20130319
  Receipt Date: 20130319
  Transmission Date: 20140127
  Serious: No
  Sender: FDA-Public Use
  Company Number: US-BAYER-2013-026942

PATIENT
  Age: 80 Year
  Sex: Male

DRUGS (7)
  1. AVELOX [Suspect]
     Indication: PULMONARY CONGESTION
     Dosage: 400 MG, QD
     Route: 048
     Dates: start: 20130131
  2. GLIPIZIDE [Concomitant]
     Dosage: 10 MG, UNK
  3. JANUVIA [Concomitant]
     Dosage: 100 MG, UNK
  4. ACTOS [Concomitant]
     Dosage: 30 MG, UNK
  5. AMIODARONE [Concomitant]
     Dosage: 200 MG, UNK
  6. CRESTOR [Concomitant]
     Dosage: 20 MG, UNK
  7. ZETIA [Concomitant]
     Dosage: 10 MG, UNK

REACTIONS (2)
  - Erythema [None]
  - Erythema [None]
